FAERS Safety Report 16120686 (Version 1)
Quarter: 2019Q1

REPORT INFORMATION
  Report Type: Spontaneous
  Country: US (occurrence: US)
  Receive Date: 20190327
  Receipt Date: 20190327
  Transmission Date: 20190418
  Serious: No
  Sender: FDA-Public Use
  Company Number: US-ASTRAZENECA-2019SE34327

PATIENT
  Age: 21948 Day
  Sex: Female
  Weight: 77.6 kg

DRUGS (2)
  1. VENTOILIN [Concomitant]
     Dosage: PRN
     Route: 055
  2. SYMBICORT [Suspect]
     Active Substance: BUDESONIDE\FORMOTEROL FUMARATE DIHYDRATE
     Indication: CHRONIC OBSTRUCTIVE PULMONARY DISEASE
     Dosage: 160/4.5 MCG TWO INHALATIONS TWICE A DAY
     Route: 055
     Dates: start: 20190205, end: 20190208

REACTIONS (7)
  - Gingival blister [Recovered/Resolved]
  - Nasal discomfort [Recovering/Resolving]
  - Oropharyngeal pain [Recovering/Resolving]
  - Paraesthesia oral [Recovered/Resolved]
  - Intentional product misuse [Unknown]
  - Sinus pain [Recovering/Resolving]
  - Tonsillar disorder [Recovering/Resolving]

NARRATIVE: CASE EVENT DATE: 20190205
